FAERS Safety Report 14288274 (Version 2)
Quarter: 2018Q1

REPORT INFORMATION
  Report Type: Report from Study
  Country: BE (occurrence: BE)
  Receive Date: 20171214
  Receipt Date: 20180120
  Transmission Date: 20180509
  Serious: Yes (Other)
  Sender: FDA-Public Use
  Company Number: BE-EMD SERONO-8196543

PATIENT
  Age: 45 Year
  Sex: Male

DRUGS (2)
  1. REBIF [Suspect]
     Active Substance: INTERFERON BETA-1A
     Indication: MULTIPLE SCLEROSIS
     Dosage: UNSPECIFIED DOSE
     Dates: start: 20170915
  2. REBIF [Suspect]
     Active Substance: INTERFERON BETA-1A
     Dosage: FULL DOSE
     Dates: start: 20171012

REACTIONS (6)
  - Pyrexia [Not Recovered/Not Resolved]
  - Mobility decreased [Unknown]
  - Muscular weakness [Unknown]
  - Insomnia [Not Recovered/Not Resolved]
  - Abdominal discomfort [Not Recovered/Not Resolved]
  - Fall [Unknown]

NARRATIVE: CASE EVENT DATE: 201710
